FAERS Safety Report 23915467 (Version 8)
Quarter: 2025Q4

REPORT INFORMATION
  Report Type: Report from Study
  Country: US (occurrence: None)
  Receive Date: 20240529
  Receipt Date: 20251211
  Transmission Date: 20260118
  Serious: Yes (Other)
  Sender: UCB
  Company Number: US-UCBSA-2024025656

PATIENT
  Age: 27 Year
  Weight: 51 kg

DRUGS (3)
  1. FENFLURAMINE HYDROCHLORIDE [Suspect]
     Active Substance: FENFLURAMINE HYDROCHLORIDE
     Indication: Epilepsy
     Dosage: 9.2 MILLIGRAM (10.2 MG/KG/DAY) TOTAL (20.4 MILLIGRAM)
  2. FENFLURAMINE HYDROCHLORIDE [Suspect]
     Active Substance: FENFLURAMINE HYDROCHLORIDE
     Indication: Off label use
     Dosage: 20.4 MILLIGRAM PER DAY
  3. FENFLURAMINE HYDROCHLORIDE [Suspect]
     Active Substance: FENFLURAMINE HYDROCHLORIDE
     Indication: Seizure

REACTIONS (2)
  - Tricuspid valve incompetence [Not Recovered/Not Resolved]
  - Off label use [Unknown]
